FAERS Safety Report 10867541 (Version 2)
Quarter: 2015Q1

REPORT INFORMATION
  Report Type: Spontaneous
  Country: DE (occurrence: DE)
  Receive Date: 20150225
  Receipt Date: 20150325
  Transmission Date: 20150721
  Serious: Yes (Hospitalization, Disabling)
  Sender: FDA-Public Use
  Company Number: DE-JNJFOC-20150208647

PATIENT
  Age: 37 Year
  Sex: Female
  Weight: 85 kg

DRUGS (7)
  1. METHOTREXATE [Suspect]
     Active Substance: METHOTREXATE
     Indication: PRODUCT USED FOR UNKNOWN INDICATION
     Route: 058
  2. METHOTREXATE [Suspect]
     Active Substance: METHOTREXATE
     Indication: PRODUCT USED FOR UNKNOWN INDICATION
     Route: 058
  3. PROCORALAN [Concomitant]
     Active Substance: IVABRADINE
     Route: 048
     Dates: start: 2014
  4. PREDNISOLON [Concomitant]
     Active Substance: PREDNISOLONE
     Dosage: 5-20 MG
     Route: 048
  5. IBUPROFEN. [Concomitant]
     Active Substance: IBUPROFEN
     Route: 048
  6. CYMBALTA [Concomitant]
     Active Substance: DULOXETINE HYDROCHLORIDE
     Route: 048
     Dates: start: 2012
  7. STELARA [Suspect]
     Active Substance: USTEKINUMAB
     Indication: PSORIATIC ARTHROPATHY
     Route: 058
     Dates: start: 201401

REACTIONS (5)
  - Osteitis [Unknown]
  - Retinal detachment [Unknown]
  - Cataract [Recovered/Resolved]
  - Acute disseminated encephalomyelitis [Not Recovered/Not Resolved]
  - Optic neuritis [Unknown]

NARRATIVE: CASE EVENT DATE: 201406
